FAERS Safety Report 9185258 (Version 1)
Quarter: 2012Q4

REPORT INFORMATION
  Report Type: 
  Country: BR (occurrence: BR)
  Receive Date: 20121101
  Receipt Date: 20121101
  Transmission Date: 20130627
  Serious: Yes (Hospitalization)
  Sender: FDA-Public Use
  Company Number: BR-PFIZER INC-2012268830

PATIENT
  Age: 64 Year
  Sex: Female

DRUGS (1)
  1. LYRICA [Suspect]
     Indication: OSTEOPOROSIS
     Dosage: 150 mg per day
     Route: 048
     Dates: start: 20120925

REACTIONS (3)
  - Cardiac disorder [Unknown]
  - Osteoporosis [Unknown]
  - Off label use [Not Recovered/Not Resolved]
